FAERS Safety Report 12429353 (Version 1)
Quarter: 2016Q2

REPORT INFORMATION
  Report Type: Spontaneous
  Country: US (occurrence: US)
  Receive Date: 20160602
  Receipt Date: 20160602
  Transmission Date: 20160815
  Serious: No
  Sender: FDA-Public Use
  Company Number: US-LNK INTERNATIONAL, INC.-1053106

PATIENT
  Age: 16 Year
  Sex: Female

DRUGS (2)
  1. ZITHROMAX [Concomitant]
     Active Substance: AZITHROMYCIN DIHYDRATE
     Dates: start: 20160518, end: 20160519
  2. ACETAMINOPHEN 325 MG, PHENYLEPHRINE HCL 5 MG, GUAIFENESIN 200 MG FC WH [Suspect]
     Active Substance: ACETAMINOPHEN\GUAIFENESIN\PHENYLEPHRINE HYDROCHLORIDE
     Route: 048
     Dates: start: 20160518, end: 20160519

REACTIONS (1)
  - Heart rate increased [None]
